FAERS Safety Report 5057558-1 (Version None)
Quarter: 2006Q3

REPORT INFORMATION
  Report Type: 
  Country: None (occurrence: None)
  Receive Date: 20060721
  Receipt Date: 20051121
  Transmission Date: 20061208
  Serious: No
  Sender: FDA-Public Use
  Company Number: US-GLAXOSMITHKLINE-A0583319A

PATIENT
  Age: 48 Year
  Sex: Female

DRUGS (8)
  1. AVANDIA [Suspect]
     Dosage: 8MG PER DAY
     Route: 048
     Dates: start: 20040401
  2. NOVOLIN [Concomitant]
     Dosage: 40UNIT TWICE PER DAY
     Route: 065
  3. GLUCOPHAGE [Concomitant]
     Dosage: 1G TWICE PER DAY
     Route: 065
  4. CRESTOR [Concomitant]
     Route: 065
  5. ACCUPRIL [Concomitant]
     Route: 065
  6. LEVOTHYROXINE SODIUM [Concomitant]
     Dosage: 150MCG PER DAY
     Route: 065
  7. ASPIRIN [Concomitant]
     Dosage: 81MG PER DAY
     Route: 065
  8. PROTONIX [Concomitant]
     Route: 065

REACTIONS (2)
  - NAUSEA [None]
  - PHARMACEUTICAL PRODUCT COMPLAINT [None]
